FAERS Safety Report 7451438-X (Version None)
Quarter: 2011Q2

REPORT INFORMATION
  Report Type: 
  Country: None (occurrence: None)
  Receive Date: 20110502
  Receipt Date: 20110426
  Transmission Date: 20111010
  Serious: Yes (Hospitalization)
  Sender: FDA-Public Use
  Company Number: A0889202A

PATIENT
  Age: 48 Year
  Sex: Female
  Weight: 116.8 kg

DRUGS (6)
  1. METFORMIN [Concomitant]
  2. TOPROL-XL [Concomitant]
  3. LIPITOR [Concomitant]
  4. INSULIN [Concomitant]
  5. AVANDIA [Suspect]
     Dosage: 8MG PER DAY
     Route: 048
     Dates: start: 20030101, end: 20060101
  6. COZAAR [Concomitant]

REACTIONS (2)
  - STENT PLACEMENT [None]
  - CARDIAC FAILURE CONGESTIVE [None]
